FAERS Safety Report 12286774 (Version 12)
Quarter: 2017Q4

REPORT INFORMATION
  Report Type: Report from Study
  Country: US (occurrence: US)
  Receive Date: 20160420
  Receipt Date: 20171117
  Transmission Date: 20180320
  Serious: Yes (Other)
  Sender: FDA-Public Use
  Company Number: PHEH2016US008735

PATIENT
  Age: 42 Year
  Sex: Female

DRUGS (2)
  1. COSENTYX [Suspect]
     Active Substance: SECUKINUMAB
     Indication: PSORIATIC ARTHROPATHY
  2. COSENTYX [Suspect]
     Active Substance: SECUKINUMAB
     Indication: PSORIASIS
     Dosage: UNK
     Route: 065
     Dates: start: 20150801

REACTIONS (12)
  - Weight decreased [Unknown]
  - Crepitations [Unknown]
  - Accident [Unknown]
  - Ligament rupture [Recovering/Resolving]
  - Procedural haemorrhage [Recovering/Resolving]
  - Ligament sprain [Unknown]
  - Epistaxis [Recovering/Resolving]
  - Headache [Recovering/Resolving]
  - Joint swelling [Not Recovered/Not Resolved]
  - Fatigue [Unknown]
  - Scar [Unknown]
  - Hypersensitivity [Unknown]

NARRATIVE: CASE EVENT DATE: 20170402
